FAERS Safety Report 14799347 (Version 1)
Quarter: 2018Q2

REPORT INFORMATION
  Report Type: Spontaneous
  Country: RU (occurrence: RU)
  Receive Date: 20180424
  Receipt Date: 20180424
  Transmission Date: 20180711
  Serious: Yes (Hospitalization, Other)
  Sender: FDA-Public Use
  Company Number: RU-BAYER-2018-073345

PATIENT
  Age: 34 Year
  Sex: Female

DRUGS (1)
  1. YARINA [Suspect]
     Active Substance: DROSPIRENONE\ETHINYL ESTRADIOL
     Indication: CONTRACEPTION
     Dosage: 1 DF, QD
     Route: 048
     Dates: start: 2007, end: 2017

REACTIONS (2)
  - Deep vein thrombosis [Recovered/Resolved]
  - Acute lymphocytic leukaemia (in remission) [None]

NARRATIVE: CASE EVENT DATE: 201611
